FAERS Safety Report 20349728 (Version 1)
Quarter: 2022Q1

REPORT INFORMATION
  Report Type: Spontaneous
  Country: US (occurrence: None)
  Receive Date: 20220117
  Receipt Date: 20220117
  Transmission Date: 20220423
  Serious: Yes (Other)
  Sender: FDA-Public Use
  Company Number: None

PATIENT
  Age: 35 Year
  Sex: Female
  Weight: 63 kg

DRUGS (1)
  1. AZITHROMYCIN [Suspect]
     Active Substance: AZITHROMYCIN
     Indication: Sinusitis
     Dosage: OTHER QUANTITY : 6 TABLET(S);?FREQUENCY : EVERY 12 HOURS;?
     Route: 048
     Dates: start: 20220116, end: 20220116

REACTIONS (8)
  - Dizziness [None]
  - Palpitations [None]
  - Chest pain [None]
  - Chills [None]
  - Nausea [None]
  - Blood pressure increased [None]
  - Heart rate irregular [None]
  - Insomnia [None]

NARRATIVE: CASE EVENT DATE: 20220116
